FAERS Safety Report 8338921-X (Version None)
Quarter: 2012Q2

REPORT INFORMATION
  Report Type: 
  Country: None (occurrence: None)
  Receive Date: 20120506
  Receipt Date: 20090313
  Transmission Date: 20120825
  Serious: Yes (Death, Hospitalization, Other)
  Sender: FDA-Public Use
  Company Number: PHHY2009CH06038

PATIENT
  Age: 85 Year
  Sex: Male

DRUGS (26)
  1. CARVEDILOL [Concomitant]
     Dosage: UNK
     Dates: end: 20081104
  2. MORPHINE [Concomitant]
  3. INHALATION [Concomitant]
  4. TORSEMIDE [Concomitant]
     Dosage: 10 MG/D
     Route: 048
  5. FLUMAZENIL [Concomitant]
  6. DIOVAN [Suspect]
     Dosage: 80 MG, DAILY
  7. DIOVAN [Suspect]
     Dosage: 40 MG, DAILY
     Dates: start: 20081008, end: 20081104
  8. ACETYLCYSTEINE [Concomitant]
     Dosage: UNK
     Dates: end: 20081104
  9. PREDNISOLONE [Concomitant]
  10. GLUCOSE [Concomitant]
     Dosage: UNK
     Route: 042
     Dates: end: 20081104
  11. RECORMON [Concomitant]
     Dosage: 5000 IE PER WEEK
     Route: 058
     Dates: end: 20081104
  12. RECORMON [Concomitant]
     Dosage: 4000 IE/D
     Dates: start: 20081118, end: 20081120
  13. LORAZEPAM [Concomitant]
     Dosage: 1 MG/D
     Dates: end: 20081120
  14. NEXIUM [Concomitant]
     Dosage: 40 MG/D
     Dates: start: 20081120
  15. LISIPRIL [Concomitant]
     Dosage: 5 MG/D
     Dates: start: 20081120
  16. FRAGMIN [Suspect]
     Dosage: 5000 IE/D
     Route: 042
     Dates: start: 20081110, end: 20081118
  17. ASPIRIN [Suspect]
     Dosage: 100 MG, DAILY
     Dates: start: 20081119, end: 20081120
  18. VITAMIN K TAB [Concomitant]
  19. ASPIRIN [Suspect]
     Dosage: 100 MG, DAILY
     Dates: start: 20081119, end: 20081120
  20. DIOVAN [Suspect]
     Dosage: 10 MG, PER DAY
     Dates: start: 20081014
  21. VENOFER [Suspect]
     Dosage: 100 MG, DAILY
     Route: 042
  22. FERRIC HYDROXIDE POLYMALTOSE COMPLEX [Suspect]
     Dosage: 500 MG, UNK
     Route: 042
     Dates: start: 20081119
  23. NEBIVOLOL HCL [Suspect]
     Dosage: 5 MG, DAILY
     Dates: start: 20081119, end: 20081120
  24. LASIX [Suspect]
     Dosage: 40 MG, UNK
     Route: 042
     Dates: start: 20081119, end: 20081120
  25. IRON [Concomitant]
     Dosage: UNK
     Dates: end: 20081104
  26. FOLIC ACID [Concomitant]
     Dosage: 5 MG/D
     Dates: start: 20081120

REACTIONS (26)
  - LIVER DISORDER [None]
  - CARDIAC HYPERTROPHY [None]
  - ARTERIOSCLEROSIS [None]
  - DYSPNOEA [None]
  - C-REACTIVE PROTEIN INCREASED [None]
  - MYOCARDIAL FIBROSIS [None]
  - CORONARY ARTERY STENOSIS [None]
  - HEPATIC FAILURE [None]
  - INTERNATIONAL NORMALISED RATIO INCREASED [None]
  - CARDIAC FAILURE [None]
  - HEPATIC SIDEROSIS [None]
  - ARTERIOSCLEROSIS CORONARY ARTERY [None]
  - RENAL ARTERIOSCLEROSIS [None]
  - RENAL ARTERY THROMBOSIS [None]
  - PYREXIA [None]
  - HEPATIC NECROSIS [None]
  - SOMNOLENCE [None]
  - OEDEMA PERIPHERAL [None]
  - HEPATIC ENCEPHALOPATHY [None]
  - BLOOD ALBUMIN DECREASED [None]
  - PROSTATE CANCER [None]
  - PULMONARY FIBROSIS [None]
  - EMPHYSEMA [None]
  - BRONCHOPNEUMONIA [None]
  - HEPATIC FIBROSIS [None]
  - INCORRECT DOSE ADMINISTERED [None]
